FAERS Safety Report 4520141-8 (Version None)
Quarter: 2004Q4

REPORT INFORMATION
  Report Type: 
  Country: None (occurrence: None)
  Receive Date: 20041029
  Receipt Date: 20040708
  Transmission Date: 20050328
  Serious: No
  Sender: FDA-Public Use
  Company Number: WAES 0407USA00747

PATIENT
  Sex: Female

DRUGS (3)
  1. EMEND [Suspect]
     Indication: PROPHYLAXIS OF NAUSEA AND VOMITING
     Dosage: 125 MG/1X/PO; 80 MG/DAILY/PO; 80 MG/DAILY/PO
     Route: 048
  2. EMEND [Suspect]
     Indication: PROPHYLAXIS OF NAUSEA AND VOMITING
     Dosage: 125 MG/1X/PO; 80 MG/DAILY/PO; 80 MG/DAILY/PO
     Route: 048
  3. EMEND [Suspect]
     Indication: PROPHYLAXIS OF NAUSEA AND VOMITING
     Dosage: 125 MG/1X/PO; 80 MG/DAILY/PO; 80 MG/DAILY/PO
     Route: 048

REACTIONS (1)
  - SOMNOLENCE [None]
